FAERS Safety Report 21637608 (Version 3)
Quarter: 2023Q2

REPORT INFORMATION
  Report Type: Spontaneous
  Country: US (occurrence: US)
  Receive Date: 20221124
  Receipt Date: 20230504
  Transmission Date: 20230722
  Serious: Yes (Other)
  Sender: FDA-Public Use
  Company Number: US-ASTELLAS-2022US041376

PATIENT
  Sex: Male

DRUGS (5)
  1. TACROLIMUS [Suspect]
     Active Substance: TACROLIMUS
     Indication: Product used for unknown indication
     Dosage: UNK UNK, UNKNOWN FREQ.
     Route: 065
     Dates: end: 20220624
  2. RAPAMUNE [Suspect]
     Active Substance: SIROLIMUS
     Indication: Heart transplant
     Route: 065
  3. CYCLOSPORINE [Concomitant]
     Active Substance: CYCLOSPORINE
     Indication: Heart transplant
     Dosage: 75 MG, TWICE DAILY (25MG CAPSULES, 3 IN THE MORNING AND 3 IN THE EVENING)
     Route: 065
  4. CYCLOSPORINE [Concomitant]
     Active Substance: CYCLOSPORINE
     Dosage: 125 MG, TWICE DAILY (25MG, 5 IN THE MORNING AND 5 IN THE EVENING)
     Route: 065
  5. PREDNISONE [Concomitant]
     Active Substance: PREDNISONE
     Indication: Heart transplant
     Dosage: UNK UNK, UNKNOWN FREQ.
     Route: 065

REACTIONS (8)
  - Glaucoma [Unknown]
  - Optic nerve injury [Unknown]
  - Haemorrhage intracranial [Unknown]
  - CSF pressure decreased [Unknown]
  - Cognitive disorder [Unknown]
  - Condition aggravated [Unknown]
  - Cerebral disorder [Unknown]
  - Ill-defined disorder [Unknown]
